FAERS Safety Report 9664804 (Version 1)
Quarter: 2013Q4

REPORT INFORMATION
  Report Type: Spontaneous
  Country: US (occurrence: US)
  Receive Date: 20131101
  Receipt Date: 20131101
  Transmission Date: 20140711
  Serious: No
  Sender: FDA-Public Use
  Company Number: US-GLAXOSMITHKLINE-A1013446A

PATIENT
  Age: 54 Year
  Sex: Female

DRUGS (3)
  1. RYTHMOL SR [Suspect]
     Indication: ATRIAL FIBRILLATION
     Dosage: 225MG TWICE PER DAY
     Route: 048
     Dates: start: 20130219
  2. NO CONCURRENT MEDICATION [Concomitant]
  3. RHYTHMOL [Concomitant]
     Route: 048

REACTIONS (4)
  - Oesophageal pain [Unknown]
  - Oesophageal pain [Unknown]
  - Oesophageal discomfort [Unknown]
  - Oesophageal irritation [Unknown]
